FAERS Safety Report 8825201 (Version 1)
Quarter: 2012Q4

REPORT INFORMATION
  Report Type: 
  Country: US (occurrence: US)
  Receive Date: 20121004
  Receipt Date: 20121004
  Transmission Date: 20130627
  Serious: Yes (Death)
  Sender: FDA-Public Use
  Company Number: US-ROCHE-1130804

PATIENT
  Sex: Male

DRUGS (9)
  1. RITUXAN [Suspect]
     Indication: CHRONIC LYMPHOCYTIC LEUKAEMIA
     Route: 065
     Dates: start: 20000623
  2. MITOXANTRONE [Concomitant]
  3. NEUPOGEN [Concomitant]
  4. PROCRIT [Concomitant]
  5. NYSTATIN [Concomitant]
  6. PROVENTIL [Concomitant]
  7. MEDROL [Concomitant]
  8. FLOVENT [Concomitant]
  9. DIFLUCAN [Concomitant]

REACTIONS (1)
  - Death [Fatal]
